FAERS Safety Report 7539973-7 (Version None)
Quarter: 2011Q2

REPORT INFORMATION
  Report Type: 
  Country: None (occurrence: None)
  Receive Date: 20110610
  Receipt Date: 20110531
  Transmission Date: 20111010
  Serious: Yes (Other)
  Sender: FDA-Public Use
  Company Number: US-JNJFOC-20081102806

PATIENT
  Sex: Female
  Weight: 43.55 kg

DRUGS (12)
  1. ELMIRON [Suspect]
     Route: 048
     Dates: start: 20081001, end: 20110501
  2. CELEXA [Concomitant]
     Indication: DEPRESSION
     Dosage: 1/2 10 MG TABLET
     Route: 048
     Dates: start: 20080101
  3. ATIVAN [Concomitant]
     Indication: SLEEP DISORDER THERAPY
     Route: 048
     Dates: start: 20080101
  4. CIPROFLOXACIN HCL [Concomitant]
     Indication: CYSTOSCOPY
     Route: 048
     Dates: start: 20110501, end: 20110501
  5. LORAZEPAM [Concomitant]
     Indication: ANXIETY
     Route: 048
     Dates: start: 20080901
  6. CELEXA [Concomitant]
     Indication: ANXIETY
     Dosage: 1/2 10 MG TABLET
     Route: 048
     Dates: start: 20080101
  7. ELMIRON [Suspect]
     Indication: CYSTITIS INTERSTITIAL
     Route: 048
     Dates: start: 20110501
  8. DETROL [Suspect]
     Indication: CYSTITIS INTERSTITIAL
     Route: 048
     Dates: start: 20081001, end: 20081001
  9. DARVOCET [Concomitant]
     Indication: BACK PAIN
     Route: 048
  10. LEXAPRO [Concomitant]
     Indication: DEPRESSION
     Route: 048
     Dates: start: 20080901
  11. POLYETHYLENE GLYCOL [Concomitant]
     Indication: CONSTIPATION
     Route: 065
     Dates: start: 20110501
  12. PEPTOBISMOL [Concomitant]
     Indication: DIARRHOEA
     Route: 065
     Dates: start: 20110501

REACTIONS (8)
  - HERNIA REPAIR [None]
  - EXOSTOSIS [None]
  - ASTHENIA [None]
  - THINKING ABNORMAL [None]
  - RASH PRURITIC [None]
  - CONSTIPATION [None]
  - ABNORMAL LOSS OF WEIGHT [None]
  - TREMOR [None]
